FAERS Safety Report 25323141 (Version 1)
Quarter: 2025Q2

REPORT INFORMATION
  Report Type: Spontaneous
  Country: GB (occurrence: GB)
  Receive Date: 20250516
  Receipt Date: 20250516
  Transmission Date: 20250717
  Serious: Yes (Other)
  Sender: AUROBINDO
  Company Number: GB-MHRA-TPP22260371C24703673YC1746696796945

PATIENT
  Age: 25 Year
  Sex: Female
  Weight: 69 kg

DRUGS (2)
  1. SERTRALINE HYDROCHLORIDE [Suspect]
     Active Substance: SERTRALINE HYDROCHLORIDE
     Indication: Product used for unknown indication
     Dosage: 1 DOSAGE FORM, ONCE A DAY (TAKE ONE TABLET ONCE A DAY)
     Route: 065
     Dates: start: 20250217, end: 20250317
  2. MIRTAZAPINE [Concomitant]
     Active Substance: MIRTAZAPINE
     Indication: Depressed mood
     Dosage: 1 DOSAGE FORM, ONCE A DAY (TAKE ONE TABLET AT NIGHT TO HELP PREVENT LOW MOOD)
     Route: 065

REACTIONS (4)
  - Anxiety [Unknown]
  - Nausea [Unknown]
  - Intrusive thoughts [Recovered/Resolved]
  - Tremor [Recovered/Resolved]
